FAERS Safety Report 11848729 (Version 1)
Quarter: 2015Q4

REPORT INFORMATION
  Report Type: Spontaneous
  Country: FR (occurrence: FR)
  Receive Date: 20151218
  Receipt Date: 20151218
  Transmission Date: 20160305
  Serious: Yes (Life-Threatening, Hospitalization)
  Sender: FDA-Public Use
  Company Number: FR-ROCHE-1679426

PATIENT
  Age: 89 Year
  Sex: Female

DRUGS (5)
  1. HERCEPTIN [Suspect]
     Active Substance: TRASTUZUMAB
     Indication: HER-2 POSITIVE BREAST CANCER
     Dosage: DATE OF LAST DOSE: 12/NOV/2015
     Route: 042
     Dates: start: 201501
  2. XELODA [Concomitant]
     Active Substance: CAPECITABINE
     Route: 065
     Dates: end: 201509
  3. NAVELBINE [Suspect]
     Active Substance: VINORELBINE TARTRATE
     Indication: HER-2 POSITIVE BREAST CANCER
     Route: 048
     Dates: start: 201509
  4. FEMARA [Concomitant]
     Active Substance: LETROZOLE
  5. AROMASINE [Concomitant]
     Active Substance: EXEMESTANE

REACTIONS (1)
  - Agranulocytosis [Recovering/Resolving]

NARRATIVE: CASE EVENT DATE: 20151116
